FAERS Safety Report 16962773 (Version 3)
Quarter: 2019Q4

REPORT INFORMATION
  Report Type: Spontaneous
  Country: US (occurrence: US)
  Receive Date: 20191025
  Receipt Date: 20191115
  Transmission Date: 20200122
  Serious: Yes (Hospitalization)
  Sender: FDA-Public Use
  Company Number: US-ACTELION-A-US2019-197331

PATIENT
  Age: 81 Year
  Sex: Female

DRUGS (8)
  1. METOPROLOL SUCCINATE. [Concomitant]
     Active Substance: METOPROLOL SUCCINATE
     Dosage: 50 MG, QD
  2. WARFARIN [Concomitant]
     Active Substance: WARFARIN
     Dosage: 2 MG, QD
     Dates: end: 20191012
  3. KCL [Concomitant]
     Active Substance: POTASSIUM CHLORIDE
     Dosage: 20 MG, BID
     Dates: end: 20191012
  4. TRACLEER [Suspect]
     Active Substance: BOSENTAN
     Indication: PULMONARY HYPERTENSION
     Dosage: 125 MG, BID
     Route: 048
  5. ALLOPURINOL. [Concomitant]
     Active Substance: ALLOPURINOL
     Dosage: 150 MG, QD
  6. LOSARTAN. [Concomitant]
     Active Substance: LOSARTAN
     Dosage: 25 MG, QD
     Dates: end: 20191012
  7. BUMEX [Concomitant]
     Active Substance: BUMETANIDE
     Dosage: 4 MG, QD
  8. METOLAZONE. [Concomitant]
     Active Substance: METOLAZONE
     Dosage: 5 MG, QD
     Dates: end: 20191012

REACTIONS (4)
  - Hypocalcaemia [Unknown]
  - Hypercalcaemia [Not Recovered/Not Resolved]
  - Parathyroid tumour benign [Unknown]
  - Hospice care [Unknown]

NARRATIVE: CASE EVENT DATE: 20191002
